FAERS Safety Report 15738854 (Version 1)
Quarter: 2018Q4

REPORT INFORMATION
  Report Type: Spontaneous
  Country: CO (occurrence: CO)
  Receive Date: 20181219
  Receipt Date: 20181219
  Transmission Date: 20190205
  Serious: Yes (Death, Hospitalization)
  Sender: FDA-Public Use
  Company Number: CO-BAXTER-2018BAX030340

PATIENT
  Sex: Male

DRUGS (1)
  1. DIANEAL PD-2 WITH DEXTROSE [Suspect]
     Active Substance: CALCIUM CHLORIDE\DEXTROSE\MAGNESIUM CHLORIDE\SODIUM CHLORIDE\SODIUM LACTATE
     Indication: CHRONIC KIDNEY DISEASE
     Dosage: 1 BAG PER DAY
     Route: 033

REACTIONS (4)
  - Electrolyte imbalance [Unknown]
  - Autoimmune hepatitis [Fatal]
  - Hepatic cirrhosis [Fatal]
  - Dehydration [Unknown]

NARRATIVE: CASE EVENT DATE: 20181127
